FAERS Safety Report 25987050 (Version 3)
Quarter: 2025Q4

REPORT INFORMATION
  Report Type: Spontaneous
  Country: US (occurrence: US)
  Receive Date: 20251103
  Receipt Date: 20251205
  Transmission Date: 20260118
  Serious: Yes (Hospitalization)
  Sender: ROCHE
  Company Number: US-ROCHE-10000423267

PATIENT
  Age: 40 Year

DRUGS (5)
  1. CELLCEPT [Suspect]
     Active Substance: MYCOPHENOLATE MOFETIL
     Indication: Immune system disorder
     Route: 065
     Dates: start: 200901
  2. CELLCEPT [Suspect]
     Active Substance: MYCOPHENOLATE MOFETIL
     Indication: Ill-defined disorder
  3. CELLCEPT [Suspect]
     Active Substance: MYCOPHENOLATE MOFETIL
     Indication: Glomerulonephritis membranoproliferative
  4. RITUXAN [Suspect]
     Active Substance: RITUXIMAB
     Indication: White blood cell disorder
     Route: 065
     Dates: start: 200901, end: 202001
  5. RITUXAN [Suspect]
     Active Substance: RITUXIMAB
     Indication: Nephropathy

REACTIONS (2)
  - Off label use [Unknown]
  - Renal failure [Unknown]

NARRATIVE: CASE EVENT DATE: 20090101
